FAERS Safety Report 5535939-7 (Version None)
Quarter: 2007Q4

REPORT INFORMATION
  Report Type: 
  Country: None (occurrence: None)
  Receive Date: 20071206
  Receipt Date: 20070828
  Transmission Date: 20080405
  Serious: Yes (Hospitalization)
  Sender: FDA-Public Use
  Company Number: US-AMGEN-STX232340

PATIENT
  Sex: Female
  Weight: 127.6 kg

DRUGS (10)
  1. ENBREL [Suspect]
     Indication: PSORIATIC ARTHROPATHY
     Route: 058
     Dates: start: 20070527, end: 20070611
  2. METHOTREXATE [Concomitant]
     Route: 048
     Dates: start: 20060901
  3. FELDENE [Concomitant]
     Dates: start: 20070101
  4. FOLIC ACID [Concomitant]
  5. ASPIRIN [Concomitant]
  6. OXYBUTYNIN CHLORIDE [Concomitant]
  7. VICODIN [Concomitant]
  8. CRESTOR [Concomitant]
  9. ZYRTEC [Concomitant]
  10. MARINOL [Concomitant]

REACTIONS (1)
  - PYELONEPHRITIS [None]
